FAERS Safety Report 18474853 (Version 5)
Quarter: 2025Q1

REPORT INFORMATION
  Report Type: Report from Study
  Country: BR (occurrence: BR)
  Receive Date: 20201106
  Receipt Date: 20250326
  Transmission Date: 20250409
  Serious: Yes (Other)
  Sender: TAKEDA
  Company Number: BR-TAKEDA-2020TUS046396

PATIENT
  Age: 7 Year
  Sex: Male
  Weight: 24.5 kg

DRUGS (4)
  1. HEMO-8R [Suspect]
     Active Substance: ANTIHEMOPHILIC FACTOR, HUMAN RECOMBINANT
     Indication: Factor VIII deficiency
  2. HEMO-8R [Suspect]
     Active Substance: ANTIHEMOPHILIC FACTOR, HUMAN RECOMBINANT
     Dosage: 50 INTERNATIONAL UNIT/KILOGRAM, QD
  3. HEMO-8R [Suspect]
     Active Substance: ANTIHEMOPHILIC FACTOR, HUMAN RECOMBINANT
     Dosage: 2250 INTERNATIONAL UNIT, QD
     Dates: start: 20180308, end: 20181213
  4. EMICIZUMAB [Concomitant]
     Active Substance: EMICIZUMAB

REACTIONS (5)
  - Anti factor VIII antibody positive [Not Recovered/Not Resolved]
  - Haemorrhage [Recovered/Resolved]
  - Therapy non-responder [Recovered/Resolved]
  - Injury [Unknown]
  - Weight fluctuation [Unknown]

NARRATIVE: CASE EVENT DATE: 20181213
